FAERS Safety Report 10978497 (Version 1)
Quarter: 2015Q2

REPORT INFORMATION
  Report Type: Spontaneous
  Country: TR (occurrence: TR)
  Receive Date: 20150402
  Receipt Date: 20150402
  Transmission Date: 20150821
  Serious: Yes (Hospitalization)
  Sender: FDA-Public Use
  Company Number: PHHY2015TR030256

PATIENT
  Age: 61 Year
  Sex: Female

DRUGS (6)
  1. CIPROFLOXACIN. [Suspect]
     Active Substance: CIPROFLOXACIN
     Indication: PYREXIA
     Dosage: 500 MG, BID
     Route: 065
  2. BACLOFEN. [Suspect]
     Active Substance: BACLOFEN
     Indication: PARKINSON^S DISEASE
     Route: 065
  3. CIPROFLOXACIN. [Suspect]
     Active Substance: CIPROFLOXACIN
     Indication: DIARRHOEA
  4. LEVODOPA [Suspect]
     Active Substance: LEVODOPA
     Indication: PARKINSON^S DISEASE
     Route: 065
  5. HEPARIN [Suspect]
     Active Substance: HEPARIN SODIUM
     Indication: PRODUCT USED FOR UNKNOWN INDICATION
     Route: 065
  6. PIPERACILLIN AND TAZOBACTAM [Concomitant]
     Active Substance: PIPERACILLIN SODIUM\TAZOBACTAM SODIUM
     Indication: PRODUCT USED FOR UNKNOWN INDICATION
     Dosage: 4.5 G, UNK
     Route: 065

REACTIONS (19)
  - C-reactive protein increased [Unknown]
  - Sepsis [Unknown]
  - Tachypnoea [Unknown]
  - White blood cell count increased [Unknown]
  - Breath sounds abnormal [Unknown]
  - Rales [Unknown]
  - Tachycardia [Unknown]
  - Vomiting [Unknown]
  - Petechiae [Unknown]
  - General physical health deterioration [Unknown]
  - Loss of consciousness [Unknown]
  - Nausea [Unknown]
  - Diarrhoea [Unknown]
  - Purpura [Unknown]
  - Hypotension [Unknown]
  - Thrombocytopenia [Recovered/Resolved]
  - Disseminated intravascular coagulation [Unknown]
  - Hypoxia [Unknown]
  - Pyrexia [Unknown]
